FAERS Safety Report 7995189-1 (Version None)
Quarter: 2011Q4

REPORT INFORMATION
  Report Type: 
  Country: None (occurrence: None)
  Receive Date: 20111220
  Receipt Date: 20111006
  Transmission Date: 20120403
  Serious: No
  Sender: FDA-Public Use
  Company Number: US-MYLANLABS-2011S1021044

PATIENT
  Age: 78 Year
  Sex: Female

DRUGS (1)
  1. NIFEDIPINE [Suspect]
     Indication: BLOOD PRESSURE INCREASED
     Route: 048
     Dates: start: 20100101

REACTIONS (4)
  - DRUG EFFECT DECREASED [None]
  - CONSTIPATION [None]
  - BLOOD PRESSURE INCREASED [None]
  - MEDICATION RESIDUE [None]
